FAERS Safety Report 20819778 (Version 1)
Quarter: 2022Q2

REPORT INFORMATION
  Report Type: Report from Study
  Country: MX (occurrence: MX)
  Receive Date: 20220512
  Receipt Date: 20220512
  Transmission Date: 20220720
  Serious: Yes (Other)
  Sender: FDA-Public Use
  Company Number: MX-NOVARTISPH-PHHY2019MX025220

PATIENT
  Age: 50 Year
  Sex: Female
  Weight: 83 kg

DRUGS (5)
  1. AZARGA [Suspect]
     Active Substance: BRINZOLAMIDE\TIMOLOL MALEATE
     Indication: Glaucoma
     Dosage: 1 DF, QD (ONE IN EACH EYE) STARTED 2 YEARS AGO
     Route: 047
     Dates: start: 201710
  2. AZARGA [Suspect]
     Active Substance: BRINZOLAMIDE\TIMOLOL MALEATE
     Dosage: 3 GTT, EVERY 12 HOURS IN THE RIGHT EYE AND EVERY 24 HOURS IN LEFY EYE
     Route: 047
  3. SYSTANE LUBRICANT [Concomitant]
     Active Substance: POLYETHYLENE GLYCOL 400\PROPYLENE GLYCOL
     Indication: Eye lubrication therapy
     Dosage: 1 DRP, EACH EYE FOR EVERY 2 OR 3 HOURS
     Route: 047
     Dates: start: 201905
  4. ENALAPRIL [Concomitant]
     Active Substance: ENALAPRIL
     Indication: Hypertension
     Dosage: 1 DF, BID (EVERY 12 HRS) STATRTED 14 YEARS AGO
     Route: 048
  5. LEVOTHYROXINE [Concomitant]
     Active Substance: LEVOTHYROXINE
     Indication: Thyroid disorder
     Dosage: 125 UG, QD
     Route: 048
     Dates: start: 201703

REACTIONS (15)
  - Cataract [Unknown]
  - Herpes ophthalmic [Recovered/Resolved]
  - Ocular hyperaemia [Recovered/Resolved]
  - Eye irritation [Recovered/Resolved]
  - Eye pruritus [Recovered/Resolved]
  - Eye pain [Recovered/Resolved]
  - Diabetes mellitus [Not Recovered/Not Resolved]
  - Diplopia [Unknown]
  - Photophobia [Unknown]
  - Visual impairment [Unknown]
  - Pain [Unknown]
  - Fall [Recovering/Resolving]
  - Vision blurred [Unknown]
  - Inappropriate schedule of product administration [Unknown]
  - Overdose [Unknown]

NARRATIVE: CASE EVENT DATE: 20181001
